FAERS Safety Report 22293151 (Version 2)
Quarter: 2023Q4

REPORT INFORMATION
  Report Type: Report from Study
  Country: US (occurrence: US)
  Receive Date: 20230508
  Receipt Date: 20231018
  Transmission Date: 20240110
  Serious: Yes (Other)
  Sender: FDA-Public Use
  Company Number: US-ABBVIE-4757004

PATIENT
  Sex: Male

DRUGS (2)
  1. IMBRUVICA [Suspect]
     Active Substance: IBRUTINIB
     Indication: Chronic lymphocytic leukaemia
     Dosage: LAST ADMIN DATE: JUL 2021, 420MG TABLETS
     Route: 048
     Dates: start: 20210723
  2. IMBRUVICA [Suspect]
     Active Substance: IBRUTINIB
     Indication: Chronic lymphocytic leukaemia
     Dosage: FIRST ADMIN DATE: JUL 2021, 420MG TABLETS
     Route: 048

REACTIONS (5)
  - Seizure [Unknown]
  - Sleep apnoea syndrome [Unknown]
  - Contusion [Unknown]
  - Insomnia [Unknown]
  - Arrhythmia [Unknown]
